FAERS Safety Report 4437181-X (Version None)
Quarter: 2004Q3

REPORT INFORMATION
  Report Type: 
  Country: None (occurrence: None)
  Receive Date: 20040827
  Receipt Date: 20040816
  Transmission Date: 20050211
  Serious: Yes (Hospitalization)
  Sender: FDA-Public Use
  Company Number: 2004220109US

PATIENT
  Age: 42 Year
  Sex: Female
  Weight: 76.8 kg

DRUGS (2)
  1. CAMPTOSAR [Suspect]
     Indication: BREAST CANCER METASTATIC
     Dosage: 100 MG/M2, CYCLIC, IV
     Route: 042
     Dates: start: 20031113, end: 20040520
  2. COMPARATOR-GEMCITABINE (GEMCITABINE) INJECTION [Suspect]
     Dosage: 1000 MG/M2, CYCLIC, IV
     Route: 042
     Dates: start: 20031113, end: 20040520

REACTIONS (3)
  - PANCREATITIS [None]
  - PLATELET COUNT DECREASED [None]
  - WHITE BLOOD CELL COUNT DECREASED [None]
